FAERS Safety Report 5110057-0 (Version None)
Quarter: 2006Q3

REPORT INFORMATION
  Report Type: 
  Country: None (occurrence: None)
  Receive Date: 20060921
  Receipt Date: 20041110
  Transmission Date: 20061208
  Serious: Yes (Other)
  Sender: FDA-Public Use
  Company Number: DE-BAYER-200411067BVD

PATIENT
  Age: 71 Year
  Sex: Male
  Weight: 84 kg

DRUGS (7)
  1. LEVITRA [Suspect]
     Indication: ERECTILE DYSFUNCTION
     Dosage: UNIT DOSE: 20 MG
     Route: 048
  2. LISINOPRIL [Concomitant]
     Indication: HYPERTENSION
     Dosage: TOTAL DAILY DOSE: 40 MG
  3. COUMADIN [Concomitant]
     Indication: ATRIAL FIBRILLATION
     Route: 048
  4. NEBILET [Concomitant]
     Indication: HYPERTENSION
  5. ZOCOR [Concomitant]
     Indication: HYPERLIPIDAEMIA
  6. ISCOVER [Concomitant]
  7. CORIFEO [Concomitant]

REACTIONS (5)
  - HEADACHE [None]
  - HEMIANOPIA [None]
  - RETINOPATHY [None]
  - TRANSIENT ISCHAEMIC ATTACK [None]
  - VISUAL FIELD DEFECT [None]
